FAERS Safety Report 16372796 (Version 1)
Quarter: 2019Q2

REPORT INFORMATION
  Report Type: Spontaneous
  Country: RO (occurrence: RO)
  Receive Date: 20190530
  Receipt Date: 20190530
  Transmission Date: 20190711
  Serious: Yes (Other)
  Sender: FDA-Public Use
  Company Number: RO-SA-2019SA137985

PATIENT
  Age: 59 Year
  Sex: Male

DRUGS (6)
  1. NORMIX [Concomitant]
     Active Substance: RIFAXIMIN
     Dosage: 10 DF, QM
  2. SALOFALK [MESALAZINE] [Concomitant]
     Active Substance: MESALAMINE
  3. MEDROL [Concomitant]
     Active Substance: METHYLPREDNISOLONE
     Dosage: UNK UNK, BID (1/4 OF 0.8 MG- IN THE MORNING AND IN THE EVENING)
  4. FOKUSIN [Suspect]
     Active Substance: TAMSULOSIN
     Indication: PROPHYLAXIS
     Dosage: 0.4 MG, QD
     Route: 048
     Dates: start: 20190425, end: 20190510
  5. FOKUSIN [Suspect]
     Active Substance: TAMSULOSIN
     Indication: DYSURIA
     Dosage: 0.4 MG, QD
     Route: 048
     Dates: start: 20190514, end: 20190520
  6. DUSPATALIN [MEBEVERINE HYDROCHLORIDE] [Concomitant]

REACTIONS (2)
  - Intentional product misuse [Unknown]
  - Haematochezia [Not Recovered/Not Resolved]

NARRATIVE: CASE EVENT DATE: 201904
